FAERS Safety Report 12736343 (Version 10)
Quarter: 2018Q2

REPORT INFORMATION
  Report Type: Spontaneous
  Country: US (occurrence: US)
  Receive Date: 20160912
  Receipt Date: 20180511
  Transmission Date: 20180711
  Serious: Yes (Other)
  Sender: FDA-Public Use
  Company Number: US-ACTELION-A-NJ2016-141973

PATIENT
  Age: 8 Year
  Sex: Female
  Weight: 15.87 kg

DRUGS (4)
  1. TRACLEER [Suspect]
     Active Substance: BOSENTAN
     Dosage: 31.25 MG, BID
     Route: 048
     Dates: start: 20121016
  2. SILDENAFIL. [Concomitant]
     Active Substance: SILDENAFIL
     Indication: PULMONARY ARTERIAL HYPERTENSION
  3. TRACLEER [Suspect]
     Active Substance: BOSENTAN
     Indication: PULMONARY ARTERIAL HYPERTENSION
     Dosage: 62.5 MG, BID
     Route: 048
  4. FLUTICASONE. [Concomitant]
     Active Substance: FLUTICASONE

REACTIONS (16)
  - Cyanosis [Unknown]
  - Dyspnoea [Unknown]
  - Constipation [Unknown]
  - Bronchospasm [Unknown]
  - Respiratory rate increased [Unknown]
  - Seasonal allergy [Unknown]
  - Oropharyngeal pain [Unknown]
  - Oxygen saturation decreased [Unknown]
  - Mood swings [Unknown]
  - Bronchial injury [Unknown]
  - Pneumonia [Unknown]
  - Sneezing [Unknown]
  - Atypical pneumonia [Unknown]
  - Productive cough [Unknown]
  - Agitation [Unknown]
  - Eye pruritus [Unknown]

NARRATIVE: CASE EVENT DATE: 20160826
